FAERS Safety Report 12118966 (Version 1)
Quarter: 2016Q1

REPORT INFORMATION
  Report Type: Spontaneous
  Country: US (occurrence: None)
  Receive Date: 20160225
  Receipt Date: 20160225
  Transmission Date: 20160526
  Serious: Yes (Hospitalization, Other)
  Sender: FDA-Public Use
  Company Number: None

PATIENT
  Age: 9 Year
  Sex: Male
  Weight: 25 kg

DRUGS (3)
  1. SEROQUEL [Suspect]
     Active Substance: QUETIAPINE FUMARATE
     Indication: SOMNOLENCE
     Dosage: 50MG/1TAB QHS/BEDTIME ORAL
     Route: 048
     Dates: end: 20160216
  2. INTUNIV [Concomitant]
     Active Substance: GUANFACINE HYDROCHLORIDE
  3. VYVANSE [Concomitant]
     Active Substance: LISDEXAMFETAMINE DIMESYLATE

REACTIONS (5)
  - Nausea [None]
  - Excessive eye blinking [None]
  - Headache [None]
  - Tic [None]
  - Vomiting [None]

NARRATIVE: CASE EVENT DATE: 20160218
